FAERS Safety Report 9168607 (Version 2)
Quarter: 2013Q1

REPORT INFORMATION
  Report Type: Spontaneous
  Country: FR (occurrence: FR)
  Receive Date: 20130318
  Receipt Date: 20130319
  Transmission Date: 20140127
  Serious: Yes (Hospitalization, Other)
  Sender: FDA-Public Use
  Company Number: FR-PFIZER INC-2013087659

PATIENT
  Age: 78 Year
  Sex: Female

DRUGS (6)
  1. CORDARONE [Suspect]
     Indication: ATRIAL FIBRILLATION
     Dosage: 200 MG, DAILY
     Route: 048
     Dates: start: 20130114, end: 20130131
  2. XARELTO [Suspect]
     Dosage: 20  MG, DAILY
     Route: 048
     Dates: start: 20121114, end: 20130131
  3. STABLON [Concomitant]
     Dosage: UNK
  4. TERCIAN [Concomitant]
     Dosage: UNK
  5. ATARAX [Concomitant]
     Dosage: UNK
  6. METFORMIN [Concomitant]
     Dosage: UNK

REACTIONS (6)
  - Dermatitis exfoliative [Recovering/Resolving]
  - Fall [Unknown]
  - General physical health deterioration [Unknown]
  - Urinary tract infection bacterial [Unknown]
  - White blood cell count decreased [Unknown]
  - Blood creatine phosphokinase increased [Unknown]
